FAERS Safety Report 6438699-0 (Version None)
Quarter: 2009Q4

REPORT INFORMATION
  Report Type: 
  Country: None (occurrence: None)
  Receive Date: 20091113
  Receipt Date: 20091104
  Transmission Date: 20100525
  Serious: Yes (Hospitalization)
  Sender: FDA-Public Use
  Company Number: US-BIOGENIDEC-2009BI004120

PATIENT
  Age: 58 Year
  Sex: Female

DRUGS (3)
  1. AVONEX [Suspect]
     Indication: MULTIPLE SCLEROSIS
     Route: 030
     Dates: start: 20040701
  2. AVONEX [Suspect]
     Route: 030
     Dates: start: 20040701
  3. AVONEX [Suspect]
     Route: 030
     Dates: start: 20040701

REACTIONS (5)
  - ASTHENIA [None]
  - MULTIPLE SCLEROSIS RELAPSE [None]
  - PNEUMONIA [None]
  - POST PROCEDURAL INFECTION [None]
  - TOOTH ABSCESS [None]
